FAERS Safety Report 6968252-1 (Version None)
Quarter: 2010Q3

REPORT INFORMATION
  Report Type: 
  Country: None (occurrence: None)
  Receive Date: 20100907
  Receipt Date: 20100824
  Transmission Date: 20110219
  Serious: Yes (Hospitalization, Other)
  Sender: FDA-Public Use
  Company Number: US-ELI_LILLY_AND_COMPANY-US201008001493

PATIENT
  Sex: Female

DRUGS (7)
  1. FORTEO [Suspect]
     Indication: OSTEOPOROSIS
     Dosage: 20 UG, DAILY (1/D)
     Route: 058
  2. OXYCONTIN [Concomitant]
  3. LOTREL [Concomitant]
  4. LEVOTHROID [Concomitant]
  5. ALBUTEROL [Concomitant]
  6. OMNADIN [Concomitant]
  7. NEXIUM [Concomitant]

REACTIONS (4)
  - BLOOD PRESSURE INCREASED [None]
  - FALL [None]
  - FOOT FRACTURE [None]
  - MUSCULOSKELETAL STIFFNESS [None]
